FAERS Safety Report 8547783-7 (Version None)
Quarter: 2012Q3

REPORT INFORMATION
  Report Type: 
  Country: None (occurrence: None)
  Receive Date: 20120727
  Receipt Date: 20120110
  Transmission Date: 20120928
  Serious: Yes (Other)
  Sender: FDA-Public Use
  Company Number: US-ASTRAZENECA-2012SE01744

PATIENT
  Sex: Male

DRUGS (9)
  1. ZYPREXA [Suspect]
  2. ZYRTEC [Concomitant]
     Indication: SEASONAL ALLERGY
     Dosage: AS REQUIRED
     Route: 048
  3. SOMA [Suspect]
     Indication: MYALGIA
     Route: 048
     Dates: start: 20000101, end: 20030101
  4. NAPROXEN [Concomitant]
     Route: 048
  5. SOMA [Suspect]
     Route: 048
     Dates: start: 20110101, end: 20110803
  6. PROZAC [Concomitant]
  7. HYDROCODONE BITARTRATE [Concomitant]
     Indication: PAIN
     Route: 048
  8. KLONOPIN [Concomitant]
     Indication: ANXIETY
     Route: 048
  9. SEROQUEL [Suspect]
     Route: 048

REACTIONS (1)
  - CONVULSION [None]
